FAERS Safety Report 15428217 (Version 5)
Quarter: 2020Q3

REPORT INFORMATION
  Report Type: Report from Study
  Country: JP (occurrence: JP)
  Receive Date: 20180926
  Receipt Date: 20200721
  Transmission Date: 20201102
  Serious: Yes (Hospitalization, Other)
  Sender: FDA-Public Use
  Company Number: JP-BIOGEN-2017BI00497707

PATIENT
  Age: 5 Month
  Sex: Male
  Weight: 7 kg

DRUGS (26)
  1. CLARITH:DRYSYRUP [Concomitant]
     Indication: BRONCHITIS CHRONIC
     Dosage: 30?50 MG /DAY
     Route: 048
     Dates: start: 20180905
  2. SPINRAZA [Suspect]
     Active Substance: NUSINERSEN
     Route: 050
     Dates: start: 20180206, end: 20180206
  3. SPINRAZA [Suspect]
     Active Substance: NUSINERSEN
     Route: 050
     Dates: start: 20190208, end: 20190208
  4. ISOZOL [Concomitant]
     Active Substance: THIAMYLAL SODIUM
     Dosage: 10?20 MG/DAY
     Dates: start: 20181005, end: 20181005
  5. SPINRAZA [Suspect]
     Active Substance: NUSINERSEN
     Indication: SPINAL MUSCULAR ATROPHY
     Route: 050
     Dates: start: 20171205, end: 20171205
  6. SPINRAZA [Suspect]
     Active Substance: NUSINERSEN
     Route: 050
     Dates: start: 20190607, end: 20190607
  7. ISOZOL [Concomitant]
     Active Substance: THIAMYLAL SODIUM
     Indication: ANAESTHESIA PROCEDURE
     Dates: start: 20180206, end: 20180206
  8. VENETLIN [Concomitant]
     Active Substance: ALBUTEROL SULFATE
     Indication: BRONCHITIS CHRONIC
     Route: 050
     Dates: start: 20171209
  9. EMLA [Concomitant]
     Active Substance: LIDOCAINE\PRILOCAINE
     Dosage: REASONABLE AMOUNT
     Route: 050
     Dates: start: 20180104, end: 20180104
  10. EMLA [Concomitant]
     Active Substance: LIDOCAINE\PRILOCAINE
     Dosage: REASONABLE AMOUNT
     Route: 050
     Dates: start: 20180206, end: 20180206
  11. ISOZOL [Concomitant]
     Active Substance: THIAMYLAL SODIUM
     Dosage: 10?20 MG/DAY
     Dates: start: 20190607
  12. CARBOCISTEINE [Concomitant]
     Active Substance: CARBOCYSTEINE
     Indication: BRONCHITIS CHRONIC
     Dosage: 4?5ML
     Route: 050
     Dates: end: 20200211
  13. PROCATEROL HYDROCHLORIDE HYDRATE [Concomitant]
     Indication: BRONCHITIS CHRONIC
     Route: 050
     Dates: start: 20171208, end: 20171213
  14. SPINRAZA [Suspect]
     Active Substance: NUSINERSEN
     Route: 050
     Dates: start: 20171219, end: 20171219
  15. SPINRAZA [Suspect]
     Active Substance: NUSINERSEN
     Route: 050
     Dates: start: 20180104, end: 20180104
  16. MUCODYNE [Concomitant]
     Active Substance: CARBOCYSTEINE
     Indication: BRONCHITIS CHRONIC
     Route: 050
     Dates: start: 20200212
  17. EMLA [Concomitant]
     Active Substance: LIDOCAINE\PRILOCAINE
     Dosage: REASONABLE AMOUNT
     Route: 050
     Dates: start: 20171219, end: 20171219
  18. SPINRAZA [Suspect]
     Active Substance: NUSINERSEN
     Route: 050
     Dates: start: 20181005, end: 20181005
  19. SPINRAZA [Suspect]
     Active Substance: NUSINERSEN
     Route: 050
     Dates: start: 20191004
  20. EMLA [Concomitant]
     Active Substance: LIDOCAINE\PRILOCAINE
     Indication: ANAESTHESIA PROCEDURE
     Dosage: REASONABLE AMOUNT
     Route: 050
     Dates: start: 20171205, end: 20171205
  21. PROCATEROL HYDROCHLORIDE HYDRATE [Concomitant]
     Route: 050
     Dates: end: 20200211
  22. SPINRAZA [Suspect]
     Active Substance: NUSINERSEN
     Route: 050
     Dates: start: 20180605, end: 20180605
  23. EMLA [Concomitant]
     Active Substance: LIDOCAINE\PRILOCAINE
     Dosage: REASONABLE AMOUNT
     Route: 050
     Dates: start: 20180605, end: 20180605
  24. ISOZOL [Concomitant]
     Active Substance: THIAMYLAL SODIUM
     Dosage: 10?20 MG/DAY
     Dates: start: 20190208, end: 20190208
  25. SCOPOLIA EXTRACT [Concomitant]
     Active Substance: HERBALS
     Indication: SALIVARY HYPERSECRETION
     Dosage: 6MG?12MG
     Route: 050
     Dates: start: 20171220
  26. TULOBUTEROL HYDROCHLORIDE [Concomitant]
     Active Substance: TULOBUTEROL HYDROCHLORIDE
     Indication: BRONCHITIS CHRONIC
     Route: 050
     Dates: start: 20200212

REACTIONS (11)
  - Gastrooesophageal reflux disease [Unknown]
  - Pneumonia aspiration [Recovered/Resolved]
  - Pneumonia [Recovered/Resolved]
  - Respiratory tract infection [Unknown]
  - Productive cough [Recovered/Resolved]
  - Atelectasis [Unknown]
  - Aspiration [Unknown]
  - Pneumonia aspiration [Recovered/Resolved]
  - Obstructive airways disorder [Recovered/Resolved]
  - Oxygen saturation decreased [Unknown]
  - Scoliosis [Unknown]

NARRATIVE: CASE EVENT DATE: 20171208
